FAERS Safety Report 19349334 (Version 1)
Quarter: 2021Q2

REPORT INFORMATION
  Report Type: Spontaneous
  Country: US (occurrence: US)
  Receive Date: 20210529
  Receipt Date: 20210529
  Transmission Date: 20210717
  Serious: Yes (Disabling)
  Sender: FDA-Public Use
  Company Number: None

PATIENT

DRUGS (3)
  1. ELIDEL [Suspect]
     Active Substance: PIMECROLIMUS
  2. HYDROCORTISONE 2.5% [Suspect]
     Active Substance: HYDROCORTISONE
     Indication: ECZEMA
     Route: 061
  3. TRIAMCINOLONE ACETONIDE 10% [Suspect]
     Active Substance: TRIAMCINOLONE ACETONIDE

REACTIONS (10)
  - Skin fragility [None]
  - Body temperature abnormal [None]
  - Erythema [None]
  - Skin infection [None]
  - Swelling face [None]
  - Steroid withdrawal syndrome [None]
  - Dermatitis [None]
  - Eczema [None]
  - Skin burning sensation [None]
  - Oedema [None]
